FAERS Safety Report 21356309 (Version 2)
Quarter: 2024Q1

REPORT INFORMATION
  Report Type: Spontaneous
  Country: US (occurrence: US)
  Receive Date: 20220920
  Receipt Date: 20240315
  Transmission Date: 20240410
  Serious: Yes (Other)
  Sender: FDA-Public Use
  Company Number: US-NOVARTISPH-NVSC2022US209170

PATIENT
  Age: 27 Year
  Sex: Female

DRUGS (26)
  1. ONDANSETRON [Suspect]
     Active Substance: ONDANSETRON
     Indication: Prophylaxis of nausea and vomiting
     Dosage: 4 G
     Route: 042
  2. PHENYLEPHRINE [Suspect]
     Active Substance: PHENYLEPHRINE HYDROCHLORIDE
     Indication: Blood pressure management
     Dosage: 0.3-1 UG/KG/MIN (INFUSION)
     Route: 065
  3. INDOMETHACIN [Suspect]
     Active Substance: INDOMETHACIN
     Indication: Tocolysis
     Dosage: 50 MG (PR)
     Route: 065
  4. INDOMETHACIN [Suspect]
     Active Substance: INDOMETHACIN
     Dosage: 25 MG, Q6H
     Route: 048
  5. GLYCOPYRROLATE [Suspect]
     Active Substance: GLYCOPYRROLATE
     Indication: Neuromuscular blockade reversal
     Dosage: UNK
     Route: 065
  6. SUCCINYLCHOLINE CHLORIDE [Suspect]
     Active Substance: SUCCINYLCHOLINE CHLORIDE
     Indication: Induction of anaesthesia
     Dosage: UNK
     Route: 065
  7. FAMOTIDINE [Suspect]
     Active Substance: FAMOTIDINE
     Indication: Respiratory disorder prophylaxis
     Dosage: 20 MG
     Route: 042
  8. METOCLOPRAMIDE [Suspect]
     Active Substance: METOCLOPRAMIDE
     Indication: Respiratory disorder prophylaxis
     Dosage: 10 MG
     Route: 042
  9. SODIUM CITRATE [Suspect]
     Active Substance: SODIUM CITRATE
     Indication: Respiratory disorder prophylaxis
     Dosage: 30 ML (PO)
     Route: 048
  10. SCOPOLAMINE [Suspect]
     Active Substance: SCOPOLAMINE
     Indication: Prophylaxis of nausea and vomiting
     Dosage: UNK, PATCH
     Route: 065
  11. PROPOFOL [Suspect]
     Active Substance: PROPOFOL
     Indication: Induction of anaesthesia
     Dosage: 75-200 UG/KG/MIN
     Route: 065
  12. PROPOFOL [Suspect]
     Active Substance: PROPOFOL
     Indication: Maintenance of anaesthesia
  13. FENTANYL [Suspect]
     Active Substance: FENTANYL\FENTANYL CITRATE
     Indication: Induction of anaesthesia
     Dosage: UNK, 20 UG/KG
     Route: 065
  14. REMIFENTANIL [Suspect]
     Active Substance: REMIFENTANIL
     Indication: Maintenance of anaesthesia
     Dosage: 0.2 UG/KG/MIN
     Route: 065
  15. MAGNESIUM [Suspect]
     Active Substance: MAGNESIUM
     Indication: Tocolysis
     Dosage: 6 G BOLUS OVER 30 MIN
     Route: 042
  16. MAGNESIUM [Suspect]
     Active Substance: MAGNESIUM
     Dosage: 2 G, QH, INFUSION
     Route: 042
  17. NITROGLYCERIN [Suspect]
     Active Substance: NITROGLYCERIN
     Indication: Tocolysis
     Dosage: 1 UG/KG/MIN (INFUSION)
     Route: 065
  18. NITROGLYCERIN [Suspect]
     Active Substance: NITROGLYCERIN
     Dosage: 1.5 UG/KG/MIN (INFUSION)
     Route: 065
  19. NITROGLYCERIN [Suspect]
     Active Substance: NITROGLYCERIN
     Dosage: 100 UG (BOLUS)
     Route: 065
  20. LACTATED RINGERS SOLUTION [Suspect]
     Active Substance: CALCIUM CHLORIDE\POTASSIUM CHLORIDE\SODIUM CHLORIDE\SODIUM LACTATE
     Indication: Product used for unknown indication
     Dosage: UNK
     Route: 065
  21. BUPIVACAINE [Suspect]
     Active Substance: BUPIVACAINE
     Indication: Product used for unknown indication
     Dosage: 10-15 ML
     Route: 008
  22. ACETAMINOPHEN [Suspect]
     Active Substance: ACETAMINOPHEN
     Indication: Analgesic therapy
     Dosage: 1 G
     Route: 042
  23. ACETAMINOPHEN [Suspect]
     Active Substance: ACETAMINOPHEN
     Dosage: UNK, Q6H
     Route: 048
  24. NEOSTIGMINE [Suspect]
     Active Substance: NEOSTIGMINE
     Indication: Neuromuscular blockade reversal
     Dosage: UNK
     Route: 065
  25. NIFEDIPINE [Suspect]
     Active Substance: NIFEDIPINE
     Indication: Tocolysis
     Dosage: 10 MG, Q6H
     Route: 048
  26. MORPHINE [Suspect]
     Active Substance: MORPHINE
     Indication: Product used for unknown indication
     Dosage: 3 MG
     Route: 008

REACTIONS (4)
  - Premature delivery [Unknown]
  - Premature labour [Unknown]
  - Maternal exposure during pregnancy [Unknown]
  - Product use in unapproved indication [Unknown]
